FAERS Safety Report 9563605 (Version 1)
Quarter: 2013Q1

REPORT INFORMATION
  Report Type: Spontaneous
  Country: US (occurrence: None)
  Receive Date: 20121218
  Receipt Date: 20121218
  Transmission Date: 20140127
  Serious: Yes (Death)
  Sender: FDA-Public Use
  Company Number: PHEH2012US006074

PATIENT
  Sex: Male

DRUGS (1)
  1. ZOMETA (ZOLEDRONATE) SOLUTION FOR INJECTIOIN [Suspect]
     Indication: METASTASES TO BONE
     Dosage: 4 MG, IN EVERY 4 WEEKS, INTRAVENOUS
     Dates: start: 20100112, end: 20111004

REACTIONS (3)
  - Neoplasm progression [None]
  - Malaise [None]
  - Neoplasm malignant [None]
